FAERS Safety Report 7650292-0 (Version None)
Quarter: 2011Q3

REPORT INFORMATION
  Report Type: 
  Country: None (occurrence: None)
  Receive Date: 20110802
  Receipt Date: 20110719
  Transmission Date: 20111222
  Serious: Yes (Other)
  Sender: FDA-Public Use
  Company Number: IN-MYLANLABS-2011S1015398

PATIENT
  Age: 29 Year
  Sex: Male

DRUGS (1)
  1. CLOZAPINE [Suspect]
     Indication: SCHIZOPHRENIA
     Route: 065

REACTIONS (5)
  - LEUKOPENIA [None]
  - WITHDRAWAL SYNDROME [None]
  - CATATONIA [None]
  - NEUTROPENIA [None]
  - PYREXIA [None]
